FAERS Safety Report 13038917 (Version 1)
Quarter: 2016Q4

REPORT INFORMATION
  Report Type: Spontaneous
  Country: US (occurrence: US)
  Receive Date: 20161216
  Receipt Date: 20161216
  Transmission Date: 20170207
  Serious: No
  Sender: FDA-Public Use
  Company Number: None

PATIENT
  Age: 37 Year
  Sex: Female

DRUGS (9)
  1. DEXAMETHASON [Concomitant]
     Active Substance: DEXAMETHASONE
     Dosage: 100MG CAP - CAP (100MG)
  2. GABAPENTIN. [Concomitant]
     Active Substance: GABAPENTIN
  3. LETROZOLE. [Concomitant]
     Active Substance: LETROZOLE
  4. LEVETIRACETA [Concomitant]
  5. LIDOCAINE. [Concomitant]
     Active Substance: LIDOCAINE
  6. IBRANCE [Suspect]
     Active Substance: PALBOCICLIB
     Indication: BREAST CANCER
     Route: 048
     Dates: start: 20161112
  7. LETROZOLE. [Concomitant]
     Active Substance: LETROZOLE
  8. RANITIDINE. [Concomitant]
     Active Substance: RANITIDINE
  9. VENLAFAXINE [Concomitant]
     Active Substance: VENLAFAXINE HYDROCHLORIDE

REACTIONS (1)
  - Catheter site infection [None]

NARRATIVE: CASE EVENT DATE: 20161112
